FAERS Safety Report 5121638-2 (Version None)
Quarter: 2006Q4

REPORT INFORMATION
  Report Type: 
  Country: None (occurrence: None)
  Receive Date: 20061006
  Receipt Date: 20060927
  Transmission Date: 20070319
  Serious: Yes (Hospitalization, Other)
  Sender: FDA-Public Use
  Company Number: US-JNJFOC-20060800862

PATIENT
  Sex: Female
  Weight: 71.67 kg

DRUGS (5)
  1. REMICADE [Suspect]
     Route: 042
  2. REMICADE [Suspect]
     Route: 042
  3. REMICADE [Suspect]
     Route: 042
  4. REMICADE [Suspect]
     Indication: CROHN'S DISEASE
     Route: 042
  5. CHEMOTHERAPY [Concomitant]
     Route: 042

REACTIONS (3)
  - CROHN'S DISEASE [None]
  - INTESTINAL PERFORATION [None]
  - OVARIAN CANCER [None]
